FAERS Safety Report 4572725-9 (Version None)
Quarter: 2005Q1

REPORT INFORMATION
  Report Type: 
  Country: None (occurrence: None)
  Receive Date: 20050118
  Receipt Date: 20040511
  Transmission Date: 20050727
  Serious: Yes (Other)
  Sender: FDA-Public Use
  Company Number: HQWYE879213MAY04

PATIENT
  Sex: Female

DRUGS (1)
  1. PREMPRO (CONJUGATED ESTROGENS/MEDROXYPROGESTERONE, TABLET, UNSPEC) [Suspect]
     Dosage: ORAL
     Route: 048

REACTIONS (2)
  - BREAST CANCER FEMALE [None]
  - OVARIAN CANCER [None]
